FAERS Safety Report 6737246-3 (Version None)
Quarter: 2010Q2

REPORT INFORMATION
  Report Type: 
  Country: None (occurrence: None)
  Receive Date: 20100524
  Receipt Date: 20100514
  Transmission Date: 20101027
  Serious: No
  Sender: FDA-Public Use
  Company Number: US-BIOGENIDEC-2010BI016519

PATIENT
  Age: 31 Year
  Sex: Female

DRUGS (2)
  1. TYSABRI [Suspect]
     Indication: MULTIPLE SCLEROSIS
     Route: 042
     Dates: start: 20070410, end: 20081007
  2. TYSABRI [Suspect]
     Route: 042
     Dates: start: 20100430

REACTIONS (2)
  - BALANCE DISORDER [None]
  - MUSCULAR WEAKNESS [None]
